FAERS Safety Report 5071432-6 (Version None)
Quarter: 2006Q3

REPORT INFORMATION
  Report Type: 
  Country: None (occurrence: None)
  Receive Date: 20060803
  Receipt Date: 20060803
  Transmission Date: 20061208
  Serious: Yes (Disabling)
  Sender: FDA-Public Use
  Company Number: None

PATIENT
  Age: 63 Year
  Sex: Female

DRUGS (10)
  1. LISINOPRIL [Suspect]
     Indication: HYPERTENSION
     Dosage: 20 MG DAILY PO
     Route: 048
     Dates: start: 20060127, end: 20060129
  2. MORPHINE [Suspect]
     Indication: PROCEDURAL PAIN
     Dosage: 2 MG Q8 MIN PRN IV
     Route: 042
     Dates: start: 20060127, end: 20060130
  3. INSULIN [Concomitant]
  4. PREDNISONE [Concomitant]
  5. CITALOPRAM [Concomitant]
  6. GABAPENTIN [Concomitant]
  7. LEVOTHYROXINE SODIUM [Concomitant]
  8. HYDROXYCHLOROQUINE SULFATE [Concomitant]
  9. VERAPAMIL [Concomitant]
  10. BENAZEPRIL HYDROCHLORIDE [Concomitant]

REACTIONS (7)
  - ANAEMIA [None]
  - DEPRESSED LEVEL OF CONSCIOUSNESS [None]
  - HAEMORRHAGE [None]
  - HYPERKALAEMIA [None]
  - POST PROCEDURAL COMPLICATION [None]
  - POSTOPERATIVE RENAL FAILURE [None]
  - PROCEDURAL HYPOTENSION [None]
